FAERS Safety Report 7131262-8 (Version None)
Quarter: 2010Q4

REPORT INFORMATION
  Report Type: 
  Country: None (occurrence: None)
  Receive Date: 20101201
  Receipt Date: 20101125
  Transmission Date: 20110411
  Serious: Yes (Hospitalization)
  Sender: FDA-Public Use
  Company Number: FR-PFIZER INC-2010157540

PATIENT
  Age: 60 Year
  Sex: Female

DRUGS (9)
  1. ZYVOX [Suspect]
     Dosage: 600 MG, 2X/DAY
     Route: 048
     Dates: start: 20100820, end: 20100907
  2. OFLOCET [Suspect]
     Dosage: UNK MG, UNK
     Route: 048
     Dates: start: 20100816
  3. LERCANIDIPINE [Concomitant]
  4. APROVEL [Concomitant]
  5. CARDENSIEL [Concomitant]
  6. LASIX [Concomitant]
  7. TAHOR [Concomitant]
  8. PLAVIX [Concomitant]
  9. LANTUS [Concomitant]

REACTIONS (4)
  - HYPERLACTACIDAEMIA [None]
  - OESOPHAGITIS [None]
  - THROMBOCYTOPENIA [None]
  - VOMITING [None]
